FAERS Safety Report 24658615 (Version 1)
Quarter: 2024Q4

REPORT INFORMATION
  Report Type: Spontaneous
  Country: US (occurrence: None)
  Receive Date: 20241122
  Receipt Date: 20241122
  Transmission Date: 20250114
  Serious: No
  Sender: Public
  Company Number: None

PATIENT
  Age: 73 Year
  Sex: Male

DRUGS (1)
  1. LENALIDOMIDE [Suspect]
     Active Substance: LENALIDOMIDE
     Indication: Product used for unknown indication
     Dosage: FREQUENCY : AS DIRECTED;?
     Route: 048
     Dates: start: 202306

REACTIONS (2)
  - Blood creatinine increased [None]
  - Norovirus infection [None]

NARRATIVE: CASE EVENT DATE: 20241003
